FAERS Safety Report 8477210-X (Version None)
Quarter: 2012Q2

REPORT INFORMATION
  Report Type: 
  Country: None (occurrence: None)
  Receive Date: 20120619
  Receipt Date: 20120515
  Transmission Date: 20120825
  Serious: Yes (Other)
  Sender: FDA-Public Use
  Company Number: 2012SP026106

PATIENT
  Sex: Female

DRUGS (3)
  1. RIBAVIRIN [Suspect]
     Indication: HEPATITIS C
     Dates: start: 20120420
  2. PEG-INTRON [Suspect]
     Indication: HEPATITIS C
     Dates: start: 20120420
  3. VICTRELIS [Suspect]
     Indication: HEPATITIS C
     Dates: start: 20120518

REACTIONS (14)
  - ANXIETY [None]
  - MALAISE [None]
  - MEMORY IMPAIRMENT [None]
  - BACK PAIN [None]
  - CONFUSIONAL STATE [None]
  - HEADACHE [None]
  - CHILLS [None]
  - MOOD ALTERED [None]
  - IRRITABILITY [None]
  - HYPERTHYROIDISM [None]
  - PAIN [None]
  - NAUSEA [None]
  - DEHYDRATION [None]
  - FATIGUE [None]
